FAERS Safety Report 9343159 (Version 1)
Quarter: 2013Q2

REPORT INFORMATION
  Report Type: Spontaneous
  Country: US (occurrence: US)
  Receive Date: 20130611
  Receipt Date: 20130611
  Transmission Date: 20140414
  Serious: Yes (Other)
  Sender: FDA-Public Use
  Company Number: CHPA2013US009626

PATIENT
  Age: 73 Year
  Sex: Female

DRUGS (1)
  1. DESENEX PRESCRIPTIONSTRENGTH ANTIFPOWDER [Suspect]
     Indication: SKIN FISSURES
     Dosage: UNK, QHS
     Route: 061
     Dates: start: 2012

REACTIONS (5)
  - Cardiac arrest [Recovered/Resolved]
  - Therapeutic response unexpected [Not Recovered/Not Resolved]
  - Off label use [Unknown]
  - Drug administered at inappropriate site [Unknown]
  - Incorrect drug administration duration [Unknown]
